FAERS Safety Report 21143945 (Version 1)
Quarter: 2022Q3

REPORT INFORMATION
  Report Type: Spontaneous
  Country: CA (occurrence: CA)
  Receive Date: 20220728
  Receipt Date: 20220728
  Transmission Date: 20221026
  Serious: Yes (Other)
  Sender: FDA-Public Use
  Company Number: None

PATIENT
  Age: 33 Year
  Sex: Male

DRUGS (1)
  1. METHOTREXATE [Suspect]
     Active Substance: METHOTREXATE
     Indication: Inflammatory bowel disease
     Dosage: 1 EVERY 1 WEEKS
     Route: 048

REACTIONS (8)
  - Anorectal discomfort [Recovered/Resolved]
  - Nausea [Recovered/Resolved]
  - Anal fistula [Recovered/Resolved]
  - Vomiting [Recovered/Resolved]
  - Anal abscess [Recovered/Resolved]
  - Off label use [Unknown]
  - Faecal calprotectin increased [Recovered/Resolved]
  - Large intestine polyp [Recovered/Resolved]
